FAERS Safety Report 24677967 (Version 1)
Quarter: 2024Q4

REPORT INFORMATION
  Report Type: Other
  Country: DE (occurrence: DE)
  Receive Date: 20241129
  Receipt Date: 20241129
  Transmission Date: 20250115
  Serious: Yes (Other)
  Sender: ANI
  Company Number: DE-ANIPHARMA-012969

PATIENT
  Age: 31 Year
  Sex: Male

DRUGS (11)
  1. AMITRIPTYLINE [Suspect]
     Active Substance: AMITRIPTYLINE
     Indication: Product used for unknown indication
  2. MORPHINE [Suspect]
     Active Substance: MORPHINE
     Indication: Product used for unknown indication
  3. ALPHA-PHP [Concomitant]
     Active Substance: ALPHA-PHP
     Indication: Product used for unknown indication
  4. .ALPHA.-PYRROLIDINOVALEROTHIOPHENONE [Concomitant]
     Active Substance: .ALPHA.-PYRROLIDINOVALEROTHIOPHENONE
     Indication: Product used for unknown indication
  5. METHYLENEDIOXYPYRROLIDINOHEXIOPHENONE [Concomitant]
     Active Substance: METHYLENEDIOXYPYRROLIDINOHEXIOPHENONE
     Indication: Product used for unknown indication
  6. TRAMADOL [Concomitant]
     Active Substance: TRAMADOL
     Indication: Product used for unknown indication
  7. PREGABALIN [Concomitant]
     Active Substance: PREGABALIN
     Indication: Product used for unknown indication
  8. BENZOYLECGONINE [Concomitant]
     Active Substance: BENZOYLECGONINE
     Indication: Product used for unknown indication
  9. ECGONINE METHYL ESTER [Concomitant]
     Active Substance: ECGONINE METHYL ESTER
     Indication: Product used for unknown indication
  10. CODEINE [Concomitant]
     Active Substance: CODEINE
     Indication: Product used for unknown indication
  11. METHADONE [Concomitant]
     Active Substance: METHADONE HYDROCHLORIDE
     Indication: Product used for unknown indication

REACTIONS (1)
  - Drug abuse [Unknown]
